FAERS Safety Report 7031590-0 (Version None)
Quarter: 2010Q4

REPORT INFORMATION
  Report Type: 
  Country: None (occurrence: None)
  Receive Date: 20101006
  Receipt Date: 20101006
  Transmission Date: 20110411
  Serious: Yes (Life-Threatening)
  Sender: FDA-Public Use
  Company Number: None

PATIENT
  Age: 49 Year
  Sex: Female
  Weight: 72.5755 kg

DRUGS (2)
  1. BRIMONIDINE TARTRATE [Suspect]
     Indication: GLAUCOMA
     Dosage: 1 DROP EACH EYE 3 TIMES DAILY
     Dates: start: 20100829, end: 20100909
  2. AZOPT [Suspect]
     Indication: GLAUCOMA
     Dosage: 1 DROP EACH EYE 3 TIMES DAILY
     Dates: start: 20100923, end: 20100925

REACTIONS (16)
  - BONE PAIN [None]
  - BURNING SENSATION [None]
  - CHEST DISCOMFORT [None]
  - CHILLS [None]
  - COUGH [None]
  - DIZZINESS [None]
  - FUNGAL INFECTION [None]
  - HOT FLUSH [None]
  - NAUSEA [None]
  - NECK PAIN [None]
  - OROPHARYNGEAL PAIN [None]
  - PAIN IN EXTREMITY [None]
  - RASH PRURITIC [None]
  - SENSATION OF HEAVINESS [None]
  - TACHYCARDIA [None]
  - VISION BLURRED [None]
